FAERS Safety Report 8586663-8 (Version None)
Quarter: 2012Q3

REPORT INFORMATION
  Report Type: 
  Country: None (occurrence: None)
  Receive Date: 20120810
  Receipt Date: 20120801
  Transmission Date: 20120928
  Serious: Yes (Other)
  Sender: FDA-Public Use
  Company Number: US-JNJFOC-20120801715

PATIENT
  Sex: Male

DRUGS (5)
  1. TYLENOL [Suspect]
     Indication: FOETAL EXPOSURE DURING PREGNANCY
     Route: 064
  2. EXCEDRIN (ACETAMINOPHEN/CAFFEINE) [Suspect]
     Indication: FOETAL EXPOSURE DURING PREGNANCY
     Route: 064
     Dates: start: 20100101, end: 20120101
  3. EXCEDRIN (MIGRAINE) [Suspect]
     Indication: FOETAL EXPOSURE DURING PREGNANCY
     Route: 064
     Dates: start: 20070101
  4. TYLENOL [Suspect]
     Route: 064
  5. EXCEDRIN (MIGRAINE) [Suspect]
     Route: 064
     Dates: start: 20070101, end: 20100101

REACTIONS (2)
  - PREMATURE BABY [None]
  - FOETAL EXPOSURE DURING PREGNANCY [None]
